FAERS Safety Report 13307751 (Version 1)
Quarter: 2017Q1

REPORT INFORMATION
  Report Type: Spontaneous
  Country: US (occurrence: US)
  Receive Date: 20170308
  Receipt Date: 20170308
  Transmission Date: 20170428
  Serious: No
  Sender: FDA-Public Use
  Company Number: US-TAIHO ONCOLOGY INC-EU-2017-00426

PATIENT
  Age: 49 Year
  Sex: Female

DRUGS (6)
  1. LONSURF [Suspect]
     Active Substance: TIPIRACIL HYDROCHLORIDE\TRIFLURIDINE
     Indication: COLON CANCER
     Route: 048
     Dates: start: 20170127
  2. IRON [Concomitant]
     Active Substance: IRON
     Dosage: NI
  3. LORAZEPAM. [Concomitant]
     Active Substance: LORAZEPAM
     Dosage: NI
  4. VITAMIN C [Concomitant]
     Active Substance: ASCORBIC ACID
     Dosage: NI
  5. MORPHINE [Concomitant]
     Active Substance: MORPHINE
     Dosage: NI
  6. GABAPENTIN. [Concomitant]
     Active Substance: GABAPENTIN
     Dosage: NI

REACTIONS (1)
  - Fatigue [Not Recovered/Not Resolved]

NARRATIVE: CASE EVENT DATE: 201702
